FAERS Safety Report 21972234 (Version 1)
Quarter: 2023Q1

REPORT INFORMATION
  Report Type: Spontaneous
  Country: US (occurrence: None)
  Receive Date: 20230207
  Receipt Date: 20230207
  Transmission Date: 20230418
  Serious: No
  Sender: FDA-Public Use
  Company Number: None

PATIENT
  Age: 66 Year
  Sex: Male
  Weight: 104.8 kg

DRUGS (1)
  1. ABIRATERONE ACETATE [Suspect]
     Active Substance: ABIRATERONE ACETATE
     Indication: Prostate cancer
     Dosage: 1000 MG DAILY ORAL
     Route: 048
     Dates: start: 20221209, end: 20230203

REACTIONS (8)
  - Face oedema [None]
  - Rash [None]
  - Hepatitis [None]
  - Drug reaction with eosinophilia and systemic symptoms [None]
  - Drug hypersensitivity [None]
  - Superinfection [None]
  - Scab [None]
  - Type IV hypersensitivity reaction [None]

NARRATIVE: CASE EVENT DATE: 20230125
